FAERS Safety Report 12807435 (Version 1)
Quarter: 2016Q4

REPORT INFORMATION
  Report Type: Spontaneous
  Country: US (occurrence: US)
  Receive Date: 20161004
  Receipt Date: 20161004
  Transmission Date: 20170207
  Serious: Yes (Hospitalization)
  Sender: FDA-Public Use
  Company Number: None

PATIENT
  Age: 82 Year
  Sex: Male
  Weight: 68.9 kg

DRUGS (1)
  1. SORAFENIB [Suspect]
     Active Substance: SORAFENIB
     Dates: end: 20160919

REACTIONS (4)
  - Influenza like illness [None]
  - Lethargy [None]
  - Decreased appetite [None]
  - Electrolyte imbalance [None]

NARRATIVE: CASE EVENT DATE: 20160914
